FAERS Safety Report 26031942 (Version 1)
Quarter: 2025Q4

REPORT INFORMATION
  Report Type: Spontaneous
  Country: US (occurrence: US)
  Receive Date: 20251112
  Receipt Date: 20251112
  Transmission Date: 20260118
  Serious: Yes (Hospitalization)
  Sender: ROCHE
  Company Number: US-ROCHE-10000429491

PATIENT
  Age: 69 Year
  Sex: Male

DRUGS (2)
  1. OCREVUS [Suspect]
     Active Substance: OCRELIZUMAB
     Indication: Primary progressive multiple sclerosis
     Route: 042
     Dates: start: 201707
  2. BACLOFEN [Concomitant]
     Active Substance: BACLOFEN

REACTIONS (4)
  - Cellulitis [Recovered/Resolved]
  - Streptococcal infection [Recovered/Resolved]
  - Lymphoedema [Unknown]
  - Vasodilatation [Unknown]

NARRATIVE: CASE EVENT DATE: 20250301
